FAERS Safety Report 5132275-8 (Version None)
Quarter: 2006Q4

REPORT INFORMATION
  Report Type: 
  Country: None (occurrence: None)
  Receive Date: 20061023
  Receipt Date: 20061017
  Transmission Date: 20070319
  Serious: Yes (Hospitalization)
  Sender: FDA-Public Use
  Company Number: FR-SP-2006-02687

PATIENT
  Age: 69 Year
  Sex: Male
  Weight: 65 kg

DRUGS (1)
  1. IMMUCYST [Suspect]
     Indication: BLADDER CANCER
     Route: 043
     Dates: start: 20060516, end: 20060620

REACTIONS (10)
  - ALANINE AMINOTRANSFERASE INCREASED [None]
  - ARTHRITIS [None]
  - ASPARTATE AMINOTRANSFERASE INCREASED [None]
  - BOVINE TUBERCULOSIS [None]
  - CONJUNCTIVITIS [None]
  - DRUG RESISTANCE [None]
  - GAMMA-GLUTAMYLTRANSFERASE INCREASED [None]
  - JOINT EFFUSION [None]
  - LIVER DISORDER [None]
  - NECK PAIN [None]
